FAERS Safety Report 6332513-X (Version None)
Quarter: 2009Q3

REPORT INFORMATION
  Report Type: 
  Country: None (occurrence: None)
  Receive Date: 20090828
  Receipt Date: 20090202
  Transmission Date: 20100115
  Serious: No
  Sender: FDA-Public Use
  Company Number: A0766339A

PATIENT
  Age: 59 Year
  Sex: Male

DRUGS (5)
  1. FLU VACCINE [Suspect]
     Indication: PROPHYLAXIS
     Route: 065
     Dates: start: 20090101, end: 20090101
  2. MALARONE [Suspect]
     Indication: MALARIA
     Route: 048
     Dates: start: 20090101, end: 20090101
  3. TYPHOID VACCINE [Suspect]
     Indication: PROPHYLAXIS
     Route: 065
     Dates: start: 20090101, end: 20090101
  4. TYPHUS VACCINE [Suspect]
     Indication: PROPHYLAXIS
     Route: 065
     Dates: start: 20090101, end: 20090101
  5. NO CONCURRENT MEDICATION [Concomitant]

REACTIONS (2)
  - PAIN [None]
  - SALIVARY GLAND ENLARGEMENT [None]
